APPROVED DRUG PRODUCT: ACETIC ACID
Active Ingredient: ACETIC ACID, GLACIAL
Strength: 2%
Dosage Form/Route: SOLUTION/DROPS;OTIC
Application: A085493 | Product #001
Applicant: KV PHARMACEUTICAL CO
Approved: Approved Prior to Jan 1, 1982 | RLD: No | RS: No | Type: DISCN